FAERS Safety Report 14677083 (Version 11)
Quarter: 2019Q2

REPORT INFORMATION
  Report Type: Report from Study
  Country: US (occurrence: US)
  Receive Date: 20180324
  Receipt Date: 20190610
  Transmission Date: 20190711
  Serious: Yes (Life-Threatening, Other)
  Sender: FDA-Public Use
  Company Number: US-TESARO, INC-US-2017TSO04634

PATIENT
  Age: 74 Year
  Sex: Female

DRUGS (8)
  1. ZEJULA [Suspect]
     Active Substance: NIRAPARIB
     Indication: OVARIAN CANCER
     Dosage: 300 MG, QD
     Route: 048
     Dates: start: 20171122, end: 20171212
  2. ZEJULA [Suspect]
     Active Substance: NIRAPARIB
     Dosage: 200 MG, QD (QHS)
     Route: 048
     Dates: start: 20171227
  3. ZEJULA [Suspect]
     Active Substance: NIRAPARIB
     Dosage: 300 MG, QD
     Route: 048
  4. GABAPENTIN. [Concomitant]
     Active Substance: GABAPENTIN
     Indication: PRODUCT USED FOR UNKNOWN INDICATION
     Dosage: UNK
  5. ZEJULA [Suspect]
     Active Substance: NIRAPARIB
     Dosage: 100 MG, UNK
  6. ZEJULA [Suspect]
     Active Substance: NIRAPARIB
     Dosage: 200 MG, QD
     Route: 048
  7. MIRALAX [Concomitant]
     Active Substance: POLYETHYLENE GLYCOL 3350
     Indication: PRODUCT USED FOR UNKNOWN INDICATION
     Dosage: UNK, QD
     Route: 065
  8. FIBER [Concomitant]
     Active Substance: PSYLLIUM HUSK
     Indication: PRODUCT USED FOR UNKNOWN INDICATION
     Dosage: UNK, QD
     Route: 065

REACTIONS (38)
  - Haemoglobin decreased [Recovering/Resolving]
  - Muscular weakness [Unknown]
  - Alopecia [Not Recovered/Not Resolved]
  - Eastern Cooperative Oncology Group performance status worsened [Unknown]
  - Flatulence [Recovered/Resolved]
  - Carbohydrate antigen 125 increased [Not Recovered/Not Resolved]
  - Neuropathy peripheral [Not Recovered/Not Resolved]
  - Skin discolouration [Recovered/Resolved]
  - Macrocytosis [Unknown]
  - Decreased appetite [Recovered/Resolved]
  - Thyroid disorder [Unknown]
  - Abdominal discomfort [Not Recovered/Not Resolved]
  - Oral pain [Unknown]
  - Abdominal distension [Not Recovered/Not Resolved]
  - Arthralgia [Unknown]
  - Fatigue [Not Recovered/Not Resolved]
  - Haematocrit decreased [Unknown]
  - Emotional distress [Unknown]
  - Insomnia [Not Recovered/Not Resolved]
  - Balance disorder [Recovered/Resolved]
  - Adverse drug reaction [Not Recovered/Not Resolved]
  - Stomatitis [Not Recovered/Not Resolved]
  - Abdominal wall disorder [Unknown]
  - Dry skin [Unknown]
  - Muscle spasms [Not Recovered/Not Resolved]
  - Paraesthesia [Recovered/Resolved]
  - Abdominal pain upper [Unknown]
  - Nausea [Recovered/Resolved]
  - Platelet count decreased [Recovered/Resolved]
  - Hypochromasia [Unknown]
  - Constipation [Recovered/Resolved]
  - Headache [Recovered/Resolved]
  - Back pain [Unknown]
  - Hypomagnesaemia [Not Recovered/Not Resolved]
  - Pain in extremity [Unknown]
  - Haemorrhoids [Unknown]
  - Blood pressure increased [Recovered/Resolved]
  - Asthenia [Recovering/Resolving]

NARRATIVE: CASE EVENT DATE: 20171212
